FAERS Safety Report 8609015-0 (Version None)
Quarter: 2012Q3

REPORT INFORMATION
  Report Type: 
  Country: None (occurrence: None)
  Receive Date: 20120821
  Receipt Date: 20120814
  Transmission Date: 20120928
  Serious: Yes (Hospitalization)
  Sender: FDA-Public Use
  Company Number: JP-GLAXOSMITHKLINE-B0816035A

PATIENT
  Sex: Male

DRUGS (3)
  1. CELESTAMINE TAB [Concomitant]
     Indication: RHINITIS ALLERGIC
     Route: 048
  2. FLUTICASONE FUROATE [Suspect]
     Indication: RHINITIS ALLERGIC
     Route: 045
  3. XYZAL [Concomitant]
     Indication: RHINITIS ALLERGIC
     Route: 048

REACTIONS (5)
  - NASAL INFLAMMATION [None]
  - NASAL SEPTUM DISORDER [None]
  - NASAL MUCOSAL DISORDER [None]
  - NASAL SEPTUM PERFORATION [None]
  - NASAL SEPTUM ULCERATION [None]
